FAERS Safety Report 23101084 (Version 1)
Quarter: 2023Q4

REPORT INFORMATION
  Report Type: Spontaneous
  Country: US (occurrence: US)
  Receive Date: 20231024
  Receipt Date: 20231024
  Transmission Date: 20240110
  Serious: Yes (Other)
  Sender: FDA-Public Use
  Company Number: US-REGENERON PHARMACEUTICALS, INC.-2023-101005

PATIENT
  Sex: Female

DRUGS (2)
  1. LIBTAYO [Suspect]
     Active Substance: CEMIPLIMAB-RWLC
     Indication: Non-small cell lung cancer metastatic
     Dosage: 350 MG, Q3W
     Route: 042
  2. ALIMTA [Concomitant]
     Active Substance: PEMETREXED DISODIUM
     Indication: Product used for unknown indication
     Dosage: 800 MG

REACTIONS (1)
  - Chest pain [Unknown]

NARRATIVE: CASE EVENT DATE: 20230808
